FAERS Safety Report 5624346-4 (Version None)
Quarter: 2008Q1

REPORT INFORMATION
  Report Type: 
  Country: None (occurrence: None)
  Receive Date: 20080213
  Receipt Date: 20080127
  Transmission Date: 20080703
  Serious: No
  Sender: FDA-Public Use
  Company Number: US-BAYER-200812642NA

PATIENT
  Age: 32 Year
  Sex: Female
  Weight: 70 kg

DRUGS (6)
  1. MIRENA [Suspect]
     Indication: CONTRACEPTION
     Route: 015
     Dates: start: 20070401
  2. FLUOXETINE [Concomitant]
     Indication: DEPRESSION
  3. SULFASALASIN [Concomitant]
     Indication: ARTHRITIS
  4. METHOTREXATE [Concomitant]
     Indication: ARTHRITIS
  5. CLONIDINE [Concomitant]
     Indication: HYPERTENSION
  6. FOLIC ACID [Concomitant]

REACTIONS (2)
  - AMENORRHOEA [None]
  - IUCD COMPLICATION [None]
